FAERS Safety Report 6113737-3 (Version None)
Quarter: 2009Q1

REPORT INFORMATION
  Report Type: 
  Country: None (occurrence: None)
  Receive Date: 20090312
  Receipt Date: 20090303
  Transmission Date: 20090719
  Serious: Yes (Hospitalization, Other)
  Sender: FDA-Public Use
  Company Number: PHEH2008US10384

PATIENT
  Sex: Female
  Weight: 63.039 kg

DRUGS (4)
  1. RECLAST [Suspect]
     Indication: OSTEOPOROSIS POSTMENOPAUSAL
     Dosage: 5 MG, ONCE/SINGLE
     Route: 042
     Dates: start: 20081112, end: 20081112
  2. PREMARIN [Concomitant]
  3. CALCIUM [Concomitant]
  4. VITAMIN D [Concomitant]

REACTIONS (21)
  - BLOOD PHOSPHORUS DECREASED [None]
  - BLOOD POTASSIUM DECREASED [None]
  - DIZZINESS [None]
  - DYSPNOEA [None]
  - FACIAL PARESIS [None]
  - FEELING ABNORMAL [None]
  - HYPERHIDROSIS [None]
  - HYPOAESTHESIA [None]
  - HYPOTENSION [None]
  - INFUSION RELATED REACTION [None]
  - MUSCLE SPASMS [None]
  - MUSCULAR WEAKNESS [None]
  - MYALGIA [None]
  - NAUSEA [None]
  - NYSTAGMUS [None]
  - PAIN IN EXTREMITY [None]
  - PALLOR [None]
  - PARAESTHESIA [None]
  - SWELLING FACE [None]
  - TACHYCARDIA [None]
  - TETANY [None]
